FAERS Safety Report 8278051-9 (Version None)
Quarter: 2012Q2

REPORT INFORMATION
  Report Type: 
  Country: None (occurrence: None)
  Receive Date: 20120412
  Receipt Date: 20111208
  Transmission Date: 20120825
  Serious: Yes (Hospitalization)
  Sender: FDA-Public Use
  Company Number: FR-PFIZER INC-2012088978

PATIENT
  Age: 74 Year
  Sex: Female

DRUGS (11)
  1. ATACAND [Concomitant]
     Dosage: 1 DF, 1X/DAY
     Dates: start: 20100801
  2. METOCLOPRAMIDE [Concomitant]
     Dosage: 10 MG, 1X/DAY
     Dates: start: 20110818
  3. LASIX [Concomitant]
     Dosage: 40 MG, 1X/DAY
     Dates: start: 20090101
  4. NEXIUM [Concomitant]
     Dosage: 1 DF, 1X/DAY
     Dates: start: 20090101
  5. ESTRACYT [Suspect]
     Dosage: 280 MG, 2X/DAY
     Route: 048
     Dates: end: 20111010
  6. ESTRACYT [Suspect]
     Dosage: 280 MG, 1X/DAY
     Route: 048
     Dates: start: 20110816
  7. ANAFRANIL [Concomitant]
     Dosage: 75 MG, 1X/DAY
     Dates: start: 19800101
  8. LEXOMIL [Concomitant]
     Dosage: 6 MG, 1X/DAY
     Dates: start: 20110827
  9. LEVOTHYROXINE SODIUM [Concomitant]
     Dosage: 75 UG, 1X/DAY
     Dates: start: 20080101
  10. ESTRACYT [Suspect]
     Dosage: 560 MG, 1X/DAY
     Route: 048
     Dates: start: 20110719, end: 20110816
  11. ZOLPIDEM TARTRATE [Concomitant]
     Dosage: 2.5 MG, 1X/DAY
     Dates: start: 19910101

REACTIONS (3)
  - PULMONARY OEDEMA [None]
  - ASTHENIA [None]
  - DYSPNOEA [None]
